FAERS Safety Report 20784597 (Version 1)
Quarter: 2022Q2

REPORT INFORMATION
  Report Type: Spontaneous
  Country: NL (occurrence: NL)
  Receive Date: 20220504
  Receipt Date: 20220504
  Transmission Date: 20220721
  Serious: Yes (Hospitalization)
  Sender: FDA-Public Use
  Company Number: None

PATIENT
  Age: 79 Year
  Sex: Male
  Weight: 56 kg

DRUGS (20)
  1. FLUCONAZOLE [Suspect]
     Active Substance: FLUCONAZOLE
     Indication: Candida infection
     Dosage: 1X/DAY 400MG
     Dates: start: 20220330, end: 20220403
  2. FLUCONAZOLE [Suspect]
     Active Substance: FLUCONAZOLE
     Indication: Urinary tract infection fungal
  3. BISOPROLOL FUMARATE [Concomitant]
     Active Substance: BISOPROLOL FUMARATE
  4. EZETIMIBE\SIMVASTATIN [Concomitant]
     Active Substance: EZETIMIBE\SIMVASTATIN
  5. INSULIN GLARGINE [Concomitant]
     Active Substance: INSULIN GLARGINE
  6. ISOSORBIDEMONONITRAAT A [Concomitant]
  7. OMEPRAZOLE [Concomitant]
     Active Substance: OMEPRAZOLE
  8. CHOLECALCIFEROL [Concomitant]
     Active Substance: CHOLECALCIFEROL
  9. AMIODARONE [Concomitant]
     Active Substance: AMIODARONE
  10. METHIMAZOLE [Concomitant]
     Active Substance: METHIMAZOLE
  11. ACETYLCYSTEINE [ACETYLCYSTEINE SODIUM] [Concomitant]
  12. TIOTROPIUM BROMIDE [Concomitant]
     Active Substance: TIOTROPIUM BROMIDE
  13. BUMETANIDE [Concomitant]
     Active Substance: BUMETANIDE
  14. TEMAZEPAM [Concomitant]
     Active Substance: TEMAZEPAM
  15. POLYETHYLENE GLYCOLS [Concomitant]
     Active Substance: POLYETHYLENE GLYCOLS
  16. OXYCODONE [Concomitant]
     Active Substance: OXYCODONE
  17. DIGOXIN [Concomitant]
     Active Substance: DIGOXIN
  18. MAGNESIUMHYDROXIDE [Concomitant]
  19. PHENPROCOUMON [Concomitant]
     Active Substance: PHENPROCOUMON
  20. ACETAMINOPHEN [Concomitant]
     Active Substance: ACETAMINOPHEN

REACTIONS (3)
  - Hallucination, visual [Recovered/Resolved]
  - Hallucination, auditory [Recovered/Resolved]
  - Delirium [Recovered/Resolved]

NARRATIVE: CASE EVENT DATE: 20220403
